FAERS Safety Report 18944330 (Version 1)
Quarter: 2021Q1

REPORT INFORMATION
  Report Type: Spontaneous
  Country: US (occurrence: US)
  Receive Date: 20210226
  Receipt Date: 20210226
  Transmission Date: 20210420
  Serious: No
  Sender: FDA-Public Use
  Company Number: US-BRISTOL-MYERS SQUIBB COMPANY-BMS-2021-018154

PATIENT
  Age: 75 Year
  Sex: Female

DRUGS (1)
  1. HYDREA [Suspect]
     Active Substance: HYDROXYUREA
     Indication: ESSENTIAL THROMBOCYTHAEMIA
     Dosage: 500 MILLIGRAM, QD
     Route: 048
     Dates: start: 20200715

REACTIONS (5)
  - Gingival pruritus [Unknown]
  - Intentional product use issue [Unknown]
  - Gingival recession [Unknown]
  - Stomatitis [Unknown]
  - Toothache [Unknown]

NARRATIVE: CASE EVENT DATE: 202007
